FAERS Safety Report 6159716-1 (Version None)
Quarter: 2009Q2

REPORT INFORMATION
  Report Type: 
  Country: None (occurrence: None)
  Receive Date: 20090420
  Receipt Date: 20090407
  Transmission Date: 20091009
  Serious: Yes (Hospitalization, Other)
  Sender: FDA-Public Use
  Company Number: US-BAYER-US-2007-021827

PATIENT
  Age: 36 Year
  Sex: Female
  Weight: 77 kg

DRUGS (6)
  1. BETASERON [Suspect]
     Indication: RELAPSING-REMITTING MULTIPLE SCLEROSIS
     Dosage: UNIT DOSE: 8 MIU
     Route: 058
     Dates: start: 20070605, end: 20081201
  2. BETASERON [Suspect]
     Dosage: UNIT DOSE: 8 MIU
     Route: 058
     Dates: start: 20061215
  3. THYROID TAB [Concomitant]
     Dosage: 90 MG/D, UNK
  4. FORTAMET [Concomitant]
     Dosage: 1000 MG/D, UNK
  5. VESICARE [Concomitant]
     Dosage: 10 MG/D, UNK
  6. ALEVE [Concomitant]

REACTIONS (12)
  - ABASIA [None]
  - ASTHENIA [None]
  - BLISTER [None]
  - HEMIPARESIS [None]
  - HYPERSENSITIVITY [None]
  - HYPOAESTHESIA [None]
  - MULTIPLE SCLEROSIS [None]
  - PAIN [None]
  - RASH GENERALISED [None]
  - SKIN DISCOLOURATION [None]
  - SKIN EXFOLIATION [None]
  - SKIN LESION [None]
